FAERS Safety Report 19113402 (Version 1)
Quarter: 2021Q2

REPORT INFORMATION
  Report Type: Report from Study
  Country: US (occurrence: US)
  Receive Date: 20210408
  Receipt Date: 20210408
  Transmission Date: 20210717
  Serious: Yes (Hospitalization)
  Sender: FDA-Public Use
  Company Number: US-BAYER-2021-116410

PATIENT
  Age: 68 Year
  Sex: Male

DRUGS (2)
  1. NEXAVAR [Suspect]
     Active Substance: SORAFENIB
     Indication: FIBROMA
     Dosage: 200 MG, QD (MONDAY THROUGH FRIDAY)
     Route: 048
     Dates: start: 20190205
  2. NEXAVAR [Suspect]
     Active Substance: SORAFENIB
     Indication: FIBROMA
     Dosage: 200 MG, QD (MONDAY THROUGH FRIDAY)
     Route: 048

REACTIONS (3)
  - Product use in unapproved indication [None]
  - Surgery [Unknown]
  - Off label use [None]

NARRATIVE: CASE EVENT DATE: 20190205
